FAERS Safety Report 16481937 (Version 1)
Quarter: 2019Q2

REPORT INFORMATION
  Report Type: Report from Study
  Country: US (occurrence: US)
  Receive Date: 20190627
  Receipt Date: 20190627
  Transmission Date: 20190711
  Serious: No
  Sender: FDA-Public Use
  Company Number: US-ALEXION PHARMACEUTICALS INC.-A201909382

PATIENT

DRUGS (2)
  1. STRENSIQ [Suspect]
     Active Substance: ASFOTASE ALFA
     Indication: PRODUCT USED FOR UNKNOWN INDICATION
     Dosage: UNK
     Route: 058
     Dates: end: 201906
  2. STRENSIQ [Suspect]
     Active Substance: ASFOTASE ALFA
     Dosage: UNK
     Route: 058

REACTIONS (1)
  - Condition aggravated [Not Recovered/Not Resolved]
